FAERS Safety Report 11985451 (Version 2)
Quarter: 2016Q1

REPORT INFORMATION
  Report Type: Spontaneous
  Country: US (occurrence: US)
  Receive Date: 20160201
  Receipt Date: 20160205
  Transmission Date: 20160526
  Serious: Yes (Hospitalization, Other)
  Sender: FDA-Public Use
  Company Number: US-UNITED THERAPEUTICS-UNT-2016-001243

PATIENT
  Age: 65 Year
  Sex: Female
  Weight: 86.17 kg

DRUGS (2)
  1. ADCIRCA [Concomitant]
     Active Substance: TADALAFIL
     Indication: PRODUCT USED FOR UNKNOWN INDICATION
  2. REMODULIN [Suspect]
     Active Substance: TREPROSTINIL
     Indication: PULMONARY HYPERTENSION
     Dosage: 0.058 ?G/KG, CONTINUING
     Route: 058
     Dates: start: 20131213

REACTIONS (6)
  - Dyspnoea [Unknown]
  - Device dislocation [Unknown]
  - Right ventricular failure [Unknown]
  - Drug dose omission [Unknown]
  - Atrial flutter [Unknown]
  - Tachycardia [Unknown]

NARRATIVE: CASE EVENT DATE: 201601
